FAERS Safety Report 18437975 (Version 4)
Quarter: 2021Q2

REPORT INFORMATION
  Report Type: Spontaneous
  Country: US (occurrence: US)
  Receive Date: 20201028
  Receipt Date: 20210524
  Transmission Date: 20210717
  Serious: Yes (Other)
  Sender: FDA-Public Use
  Company Number: US-PFIZER INC-2018532236

PATIENT
  Age: 72 Year
  Sex: Male

DRUGS (1)
  1. LYRICA [Suspect]
     Active Substance: PREGABALIN
     Indication: NEURALGIA
     Dosage: 75 MG, 4X/DAY (1 TAB QID)/SIG: TAKE 1 CAPSULE BY MOUTH 4 TIMES A DAY
     Route: 048
     Dates: start: 20180718

REACTIONS (4)
  - Amyotrophic lateral sclerosis [Unknown]
  - Feeling abnormal [Unknown]
  - Intervertebral disc protrusion [Unknown]
  - Loss of personal independence in daily activities [Unknown]
